FAERS Safety Report 4735060-1 (Version None)
Quarter: 2005Q3

REPORT INFORMATION
  Report Type: 
  Country: None (occurrence: None)
  Receive Date: 20050804
  Receipt Date: 20050324
  Transmission Date: 20060218
  Serious: Yes (Hospitalization, Disabling, Other)
  Sender: FDA-Public Use
  Company Number: US-MERCK-0503USA04547

PATIENT
  Age: 53 Year
  Sex: Male
  Weight: 90 kg

DRUGS (8)
  1. VIOXX [Suspect]
     Indication: ARTHRALGIA
     Route: 048
  2. VIOXX [Suspect]
     Route: 048
     Dates: start: 20040101, end: 20040901
  3. LIPITOR [Concomitant]
     Route: 065
     Dates: start: 19950101, end: 20030101
  4. ZOCOR [Concomitant]
     Route: 065
  5. VALIUM [Concomitant]
     Route: 065
     Dates: start: 19850101
  6. ASPIRIN [Concomitant]
     Route: 065
  7. ADVIL [Concomitant]
     Route: 065
     Dates: start: 19940101
  8. MEDROL [Concomitant]
     Route: 065

REACTIONS (8)
  - ANHEDONIA [None]
  - ANXIETY [None]
  - CARDIAC DISORDER [None]
  - CARDIOVASCULAR DISORDER [None]
  - HYPERTENSION [None]
  - MYOCARDIAL INFARCTION [None]
  - PAIN [None]
  - PROCEDURAL PAIN [None]
